FAERS Safety Report 9631099 (Version 1)
Quarter: 2013Q4

REPORT INFORMATION
  Report Type: Spontaneous
  Country: JP (occurrence: None)
  Receive Date: 20131011
  Receipt Date: 20131011
  Transmission Date: 20140711
  Serious: Yes (Other)
  Sender: FDA-Public Use
  Company Number: 2013P1019901

PATIENT
  Age: 66 Year
  Sex: Female

DRUGS (4)
  1. HEPARIN [Suspect]
     Dates: start: 200802
  2. UNSPECIFIED ANTIBIOTIC [Concomitant]
  3. UNSPECIFIED PROTON PUMP INHIBITOR [Concomitant]
  4. UNSPECIFIED H2 BLOCKER [Concomitant]

REACTIONS (4)
  - Heparin-induced thrombocytopenia [None]
  - Leukaemia recurrent [None]
  - Refractoriness to platelet transfusion [None]
  - Heparin-induced thrombocytopenia test positive [None]
